FAERS Safety Report 10020892 (Version 1)
Quarter: 2014Q1

REPORT INFORMATION
  Report Type: Spontaneous
  Country: JP (occurrence: JP)
  Receive Date: 20140319
  Receipt Date: 20140319
  Transmission Date: 20141002
  Serious: Yes (Other)
  Sender: FDA-Public Use
  Company Number: JP-SA-2014SA031675

PATIENT
  Age: 74 Year
  Sex: Female

DRUGS (1)
  1. ARAVA [Suspect]
     Indication: PRODUCT USED FOR UNKNOWN INDICATION
     Route: 048
     Dates: start: 201210, end: 201212

REACTIONS (3)
  - Disseminated intravascular coagulation [Unknown]
  - Pyelonephritis [Unknown]
  - Retroperitoneal abscess [Unknown]
